FAERS Safety Report 15703110 (Version 1)
Quarter: 2018Q4

REPORT INFORMATION
  Report Type: Spontaneous
  Country: US (occurrence: US)
  Receive Date: 20181127
  Receipt Date: 20181127
  Transmission Date: 20190205
  Serious: Yes (Hospitalization)
  Sender: FDA-Public Use
  Company Number: None

PATIENT
  Sex: Female

DRUGS (20)
  1. CLOBETASOL 0.05% [Concomitant]
     Active Substance: CLOBETASOL
  2. TEMAZEPAM 30MG [Concomitant]
     Active Substance: TEMAZEPAM
  3. TRAMADOL 100MG [Concomitant]
     Active Substance: TRAMADOL
  4. COMPAZINE 10MG [Concomitant]
  5. FIORICET [Concomitant]
     Active Substance: ACETAMINOPHEN\BUTALBITAL\CAFFEINE
  6. PRAVASTATINE 40MG [Concomitant]
  7. BOTOX [Suspect]
     Active Substance: ONABOTULINUMTOXINA
     Indication: NECK PAIN
     Dosage: ?          OTHER FREQUENCY:EVERY 90 DAYS;?
     Route: 030
     Dates: start: 20160408
  8. DEPAKOTE [Concomitant]
     Active Substance: DIVALPROEX SODIUM
  9. MOBIC [Concomitant]
     Active Substance: MELOXICAM
  10. PRILOSEC 40MG [Concomitant]
  11. VICODIN 7.5-300 [Concomitant]
  12. LORAZEPAM 1MG [Concomitant]
     Active Substance: LORAZEPAM
  13. MAXALT 10MG [Concomitant]
  14. EVISTA [Concomitant]
     Active Substance: RALOXIFENE HYDROCHLORIDE
  15. MECLIZINE 12.5MG [Concomitant]
  16. VITAMIN E 100UNIT [Concomitant]
  17. GABAPENTIN 600MG [Concomitant]
     Active Substance: GABAPENTIN
  18. CENTRUM [Concomitant]
     Active Substance: VITAMINS
  19. OCUVITE [Concomitant]
     Active Substance: VITAMINS
  20. OXYBUTYNIN 5MG [Concomitant]
     Active Substance: OXYBUTYNIN

REACTIONS (1)
  - Hospitalisation [None]
